FAERS Safety Report 9772380 (Version 2)
Quarter: 2014Q1

REPORT INFORMATION
  Report Type: Report from Study
  Country: NZ (occurrence: NZ)
  Receive Date: 20131219
  Receipt Date: 20140130
  Transmission Date: 20141002
  Serious: Yes (Death, Other)
  Sender: FDA-Public Use
  Company Number: PHHY2013NZ148825

PATIENT
  Age: 79 Year
  Sex: Male

DRUGS (10)
  1. CLOZARIL [Suspect]
     Indication: SCHIZOPHRENIA
     Dosage: 200 MG, DAILY
     Route: 048
     Dates: start: 19990511
  2. INSULIN [Concomitant]
     Indication: DIABETES MELLITUS
     Dosage: 10 U, DAILY
     Route: 058
  3. ASPIRIN [Concomitant]
     Dosage: 100 MG, DAILY
     Route: 048
  4. ENALAPRIL [Concomitant]
     Indication: HYPERTENSION
     Dosage: 5 MG, DAILY
     Route: 048
  5. METFORMIN [Concomitant]
     Indication: DIABETES MELLITUS
     Dosage: 1000 MG, TID
     Route: 048
  6. METOPROLOL [Concomitant]
     Indication: HYPERTENSION
     Dosage: 47.5 MG, DAILY
     Route: 048
  7. HALOPERIDOL [Concomitant]
     Indication: PSYCHOTIC DISORDER
     Dosage: 0.5 MG, DAILY
     Route: 048
  8. SIMVASTATIN [Concomitant]
     Dosage: 40 MG, DAILY
  9. TERAZOSIN [Concomitant]
     Dosage: 5 MG, DAILY
  10. OMEPRAZOLE [Concomitant]
     Dosage: 40 MG, DAILY

REACTIONS (3)
  - Sudden death [Fatal]
  - Cerebrovascular accident [Fatal]
  - Glycosylated haemoglobin increased [Unknown]
